FAERS Safety Report 6495195-2 (Version None)
Quarter: 2009Q4

REPORT INFORMATION
  Report Type: 
  Country: None (occurrence: None)
  Receive Date: 20091214
  Receipt Date: 20090520
  Transmission Date: 20100525
  Serious: No
  Sender: FDA-Public Use
  Company Number: US-BRISTOL-MYERS SQUIBB COMPANY-14620249

PATIENT
  Sex: Female

DRUGS (2)
  1. ABILIFY [Suspect]
     Dosage: QUIT COUPLE OF MONTHS AGO
     Dates: end: 20090101
  2. CLONAZEPAM [Suspect]
     Dates: start: 20030101

REACTIONS (5)
  - BLEPHAROSPASM [None]
  - MUSCLE TWITCHING [None]
  - MUSCULOSKELETAL STIFFNESS [None]
  - ORAL DISCOMFORT [None]
  - THROMBOSIS [None]
